FAERS Safety Report 6204784-1 (Version None)
Quarter: 2009Q2

REPORT INFORMATION
  Report Type: 
  Country: None (occurrence: None)
  Receive Date: 20090527
  Receipt Date: 20090508
  Transmission Date: 20091009
  Serious: Yes (Hospitalization)
  Sender: FDA-Public Use
  Company Number: AU-PFIZER INC-2008069074

PATIENT
  Age: 52 Year

DRUGS (10)
  1. MARAVIROC [Suspect]
     Indication: HIV INFECTION
     Dosage: 150 MG, 2X/DAY
     Route: 048
     Dates: start: 20080310
  2. RALTEGRAVIR [Concomitant]
     Route: 048
     Dates: start: 20080310
  3. ETRAVIRINE [Concomitant]
     Route: 048
     Dates: start: 20080310
  4. DARUNAVIR [Concomitant]
     Route: 048
     Dates: start: 20080310
  5. TRUVADA [Concomitant]
     Route: 048
     Dates: start: 20080310
  6. RITONAVIR [Concomitant]
     Route: 048
     Dates: start: 20080310
  7. RESPRIM [Concomitant]
     Route: 048
     Dates: start: 20080310
  8. LAMISIL [Concomitant]
     Route: 048
     Dates: start: 20040101
  9. VALTREX [Concomitant]
     Route: 048
     Dates: start: 20000330
  10. METOCLOPRAMIDE [Concomitant]
     Route: 048
     Dates: start: 20080317

REACTIONS (2)
  - ANAL FISSURE [None]
  - RECTAL POLYP [None]
